FAERS Safety Report 9308480 (Version 3)
Quarter: 2013Q3

REPORT INFORMATION
  Report Type: Spontaneous
  Country: JP (occurrence: JP)
  Receive Date: 20130524
  Receipt Date: 20130711
  Transmission Date: 20140515
  Serious: Yes (Other)
  Sender: FDA-Public Use
  Company Number: JP-PFIZER INC-2013155558

PATIENT
  Age: 13 Month
  Sex: Male
  Weight: 10.7 kg

DRUGS (1)
  1. BENEFIX [Suspect]
     Indication: FACTOR IX DEFICIENCY
     Dosage: 500 IU, 1X/DAY
     Route: 042
     Dates: start: 20130424, end: 20130520

REACTIONS (1)
  - Urticaria [Recovered/Resolved]
